FAERS Safety Report 18027232 (Version 2)
Quarter: 2022Q4

REPORT INFORMATION
  Report Type: Report from Study
  Country: FR (occurrence: FR)
  Receive Date: 20200715
  Receipt Date: 20221209
  Transmission Date: 20230113
  Serious: Yes (Death, Other)
  Sender: FDA-Public Use
  Company Number: FR-BAXTER-2020BAX014382

PATIENT
  Age: 57 Year
  Sex: Male

DRUGS (4)
  1. DOXORUBICIN HYDROCHLORIDE [Suspect]
     Active Substance: DOXORUBICIN HYDROCHLORIDE
     Indication: Plasma cell myeloma
     Dosage: 20.5 MG/DOSE 4 DOSE(S)/WEEK 1 WEEK(S)/CYCLE, TREATMENT LINE 2 NUMBER, DURATION 1.1 MONTHS
     Route: 065
     Dates: end: 20190107
  2. ETOPOSIDE [Suspect]
     Active Substance: ETOPOSIDE
     Indication: Plasma cell myeloma
     Dosage: 40 MG/M2/DOSE 4 DOSE(S)/WEEK 1 WEEK(S)/CYCLE, TREATMENT LINE 2 NUMBER, DURATION 1.1 MONTHS
     Route: 065
     Dates: end: 20190107
  3. CYCLOPHOSPHAMIDE [Suspect]
     Active Substance: CYCLOPHOSPHAMIDE
     Indication: Plasma cell myeloma
     Dosage: 400 MG/M2/DOSE 4 DOSE(S)/WEEK 1 WEEK(S)/CYCLE, TREATMENT LINE 2 NUMBER, DURATION 1.1 MONTHS
     Route: 065
     Dates: end: 20190107
  4. CISPLATIN [Suspect]
     Active Substance: CISPLATIN
     Indication: Plasma cell myeloma
     Dosage: 20.5 MG/DOSE 4 DOSE(S)/WEEK 1 WEEK(S)/CYCLE, TREATMENT LINE 2 NUMBER, DURATION 1.1 MONTHS
     Route: 065
     Dates: end: 20190107

REACTIONS (1)
  - Plasma cell myeloma [Fatal]
